FAERS Safety Report 8960447 (Version 1)
Quarter: 2012Q4

REPORT INFORMATION
  Report Type: Spontaneous
  Country: US (occurrence: None)
  Receive Date: 20121211
  Receipt Date: 20121211
  Transmission Date: 20130627
  Serious: Yes (Other)
  Sender: FDA-Public Use
  Company Number: None

PATIENT
  Age: 13 Year
  Sex: Female
  Weight: 25.04 kg

DRUGS (2)
  1. DAPSONE [Suspect]
     Indication: PROPHYLAXIS
     Route: 048
     Dates: start: 20120830, end: 20121001
  2. DAPSONE [Suspect]
     Indication: PNEUMOCYSTIS JIROVECI PNEUMONIA
     Route: 048
     Dates: start: 20120830, end: 20121001

REACTIONS (2)
  - Blood methaemoglobin [None]
  - Asthenia [None]
